FAERS Safety Report 11582729 (Version 1)
Quarter: 2015Q4

REPORT INFORMATION
  Report Type: Spontaneous
  Country: US (occurrence: US)
  Receive Date: 20151001
  Receipt Date: 20151001
  Transmission Date: 20160304
  Serious: No
  Sender: FDA-Public Use
  Company Number: US-ROCHE-660005

PATIENT
  Age: 37 Year
  Sex: Female
  Weight: 125.6 kg

DRUGS (2)
  1. RIBASPHERE RIBAPAK [Suspect]
     Active Substance: RIBAVIRIN
     Indication: HEPATITIS C
     Dosage: DIVIDED DOSES; PATIENT IN WEEK 32 OF THERAPY
     Route: 048
  2. PEGASYS [Suspect]
     Active Substance: PEGINTERFERON ALFA-2A
     Indication: HEPATITIS C
     Dosage: PATIENT IN WEEK 32 OF THERAPY; FORM: PFS
     Route: 058

REACTIONS (9)
  - Weight decreased [Recovered/Resolved]
  - Mouth ulceration [Recovered/Resolved]
  - Drug dose omission [Unknown]
  - Dizziness [Recovered/Resolved]
  - Blister [Not Recovered/Not Resolved]
  - Nausea [Not Recovered/Not Resolved]
  - Dyspepsia [Recovered/Resolved]
  - Decreased appetite [Recovered/Resolved]
  - Nasopharyngitis [Recovering/Resolving]

NARRATIVE: CASE EVENT DATE: 200907
